FAERS Safety Report 5415988-X (Version None)
Quarter: 2007Q3

REPORT INFORMATION
  Report Type: 
  Country: None (occurrence: None)
  Receive Date: 20070713
  Receipt Date: 20070517
  Transmission Date: 20080115
  Serious: Yes (Hospitalization)
  Sender: FDA-Public Use
  Company Number: US-JNJFOC-20060903672

PATIENT
  Age: 21 Year
  Sex: Female
  Weight: 74.8435 kg

DRUGS (5)
  1. ORTHO EVRA [Suspect]
     Indication: DRUG USE FOR UNKNOWN INDICATION
  2. TOPIRAMATE [Concomitant]
  3. LEXAPRO [Concomitant]
  4. AMBIEN [Concomitant]
  5. XANAX [Concomitant]

REACTIONS (1)
  - PULMONARY EMBOLISM [None]
